FAERS Safety Report 19961911 (Version 1)
Quarter: 2021Q4

REPORT INFORMATION
  Report Type: Spontaneous
  Country: US (occurrence: US)
  Receive Date: 20211018
  Receipt Date: 20211018
  Transmission Date: 20220303
  Serious: Yes (Other)
  Sender: FDA-Public Use
  Company Number: US-AUROBINDO-AUR-APL-2021-042096

PATIENT
  Age: 44 Year
  Sex: Male

DRUGS (4)
  1. BIVALIRUDIN [Suspect]
     Active Substance: BIVALIRUDIN
     Indication: Spontaneous heparin-induced thrombocytopenia syndrome
     Dosage: UNK
     Route: 065
  2. BIVALIRUDIN [Suspect]
     Active Substance: BIVALIRUDIN
     Indication: Cerebral venous sinus thrombosis
  3. HEPARIN [Concomitant]
     Active Substance: HEPARIN SODIUM
     Indication: Nephrostomy
     Dosage: UNK
     Route: 065
  4. WARFARIN [Concomitant]
     Active Substance: WARFARIN
     Indication: Cerebral venous sinus thrombosis
     Dosage: UNK
     Route: 065

REACTIONS (1)
  - Drug ineffective [Unknown]
